FAERS Safety Report 7382352-6 (Version None)
Quarter: 2011Q1

REPORT INFORMATION
  Report Type: 
  Country: None (occurrence: None)
  Receive Date: 20110329
  Receipt Date: 20110228
  Transmission Date: 20110831
  Serious: Yes (Other)
  Sender: FDA-Public Use
  Company Number: US-BAYER-201034706NA

PATIENT
  Sex: Female
  Weight: 74.83 kg

DRUGS (8)
  1. YASMIN [Suspect]
     Indication: CONTRACEPTION
  2. PROTONIX [Concomitant]
     Indication: GASTROOESOPHAGEAL REFLUX DISEASE
     Route: 048
  3. SPIRONOLACTONE [Concomitant]
     Indication: ACNE
     Route: 048
  4. OCELLA [Suspect]
     Indication: CONTRACEPTION
  5. BACTRIM [Concomitant]
     Indication: ACNE
     Route: 048
  6. OCELLA [Suspect]
     Indication: ACNE
     Dosage: UNK UNK, UNK
     Route: 048
     Dates: start: 20040101, end: 20090101
  7. YASMIN [Suspect]
     Indication: ACNE
     Dosage: UNK UNK, UNK
     Route: 048
     Dates: start: 20040101, end: 20090101
  8. BENZACLIN [Concomitant]
     Indication: ACNE
     Route: 061

REACTIONS (2)
  - BILIARY DYSKINESIA [None]
  - CHOLECYSTECTOMY [None]
